FAERS Safety Report 15420771 (Version 1)
Quarter: 2018Q3

REPORT INFORMATION
  Report Type: Spontaneous
  Country: US (occurrence: US)
  Receive Date: 20180924
  Receipt Date: 20180924
  Transmission Date: 20181010
  Serious: No
  Sender: FDA-Public Use
  Company Number: US-ALLERGAN-1806210US

PATIENT
  Sex: Female

DRUGS (3)
  1. CASTOR OIL. [Concomitant]
     Active Substance: CASTOR OIL
     Dosage: UNK
  2. LINZESS [Suspect]
     Active Substance: LINACLOTIDE
     Indication: CONSTIPATION
     Dosage: UNK
  3. VITAMINS                           /00067501/ [Concomitant]
     Active Substance: VITAMINS
     Dosage: UNK

REACTIONS (3)
  - Flatulence [Unknown]
  - Drug prescribing error [Unknown]
  - Diarrhoea [Unknown]
